FAERS Safety Report 4263808-1 (Version None)
Quarter: 2004Q1

REPORT INFORMATION
  Report Type: 
  Country: None (occurrence: None)
  Receive Date: 20040102
  Receipt Date: 20031218
  Transmission Date: 20041129
  Serious: Yes (Hospitalization, Other)
  Sender: FDA-Public Use
  Company Number: USA031255021

PATIENT
  Age: 75 Year
  Sex: Male
  Weight: 72 kg

DRUGS (4)
  1. HUMULIN L [Suspect]
     Indication: DIABETES MELLITUS
     Dates: end: 20010101
  2. HUMULIN R [Suspect]
     Indication: DIABETES MELLITUS
     Dates: end: 20031216
  3. HUMALOG [Suspect]
     Indication: DIABETES MELLITUS
     Dates: start: 20031217
  4. LANTUS [Concomitant]

REACTIONS (5)
  - BLINDNESS UNILATERAL [None]
  - DIABETES MELLITUS INADEQUATE CONTROL [None]
  - DRUG INEFFECTIVE [None]
  - PHARMACEUTICAL PRODUCT COMPLAINT [None]
  - VISUAL ACUITY REDUCED [None]
